FAERS Safety Report 8419834-1 (Version None)
Quarter: 2012Q2

REPORT INFORMATION
  Report Type: 
  Country: None (occurrence: None)
  Receive Date: 20120607
  Receipt Date: 20120606
  Transmission Date: 20120825
  Serious: Yes (Death, Hospitalization, Other)
  Sender: FDA-Public Use
  Company Number: PHHY2011DO87521

PATIENT
  Age: 78 Year
  Sex: Female

DRUGS (3)
  1. INSULIN [Concomitant]
     Dosage: UNK
  2. DIOVAN [Suspect]
     Indication: HYPERTENSION
     Dosage: 320 MG PER DAY
     Route: 048
  3. HYDROCHLOROTHIAZDE TAB [Concomitant]
     Dosage: UNK

REACTIONS (5)
  - DEATH [None]
  - WEIGHT INCREASED [None]
  - CEREBROVASCULAR ACCIDENT [None]
  - ULCER [None]
  - DIABETES MELLITUS [None]
